FAERS Safety Report 6006822-8 (Version None)
Quarter: 2008Q4

REPORT INFORMATION
  Report Type: 
  Country: None (occurrence: None)
  Receive Date: 20081217
  Receipt Date: 20071016
  Transmission Date: 20090506
  Serious: No
  Sender: FDA-Public Use
  Company Number: US-ASTRAZENECA-2007UW24014

PATIENT
  Age: 65 Year
  Sex: Male
  Weight: 113.4 kg

DRUGS (7)
  1. CRESTOR [Suspect]
     Indication: BLOOD CHOLESTEROL INCREASED
     Route: 048
     Dates: start: 20070815, end: 20071001
  2. ASPIRIN [Concomitant]
  3. TOLINASE [Concomitant]
  4. METFORMIN HCL [Concomitant]
  5. INSULIN [Concomitant]
  6. DIOVAN [Concomitant]
  7. VITAMINS [Concomitant]

REACTIONS (5)
  - ABDOMINAL PAIN UPPER [None]
  - BACK PAIN [None]
  - FATIGUE [None]
  - HEADACHE [None]
  - VISION BLURRED [None]
